FAERS Safety Report 15085369 (Version 3)
Quarter: 2018Q3

REPORT INFORMATION
  Report Type: Spontaneous
  Country: US (occurrence: US)
  Receive Date: 20180628
  Receipt Date: 20180912
  Transmission Date: 20181010
  Serious: Yes (Hospitalization)
  Sender: FDA-Public Use
  Company Number: US-VIFOR (INTERNATIONAL) INC.-VIT-2018-06312

PATIENT
  Age: 28 Year
  Sex: Male
  Weight: 66.67 kg

DRUGS (15)
  1. CALCIUM ACETATE. [Concomitant]
     Active Substance: CALCIUM ACETATE
  2. INSUMAN [Concomitant]
     Active Substance: INSULIN HUMAN
  3. MELATONIN [Concomitant]
     Active Substance: MELATONIN
  4. COREG [Concomitant]
     Active Substance: CARVEDILOL
  5. OMEPRAZOLE. [Concomitant]
     Active Substance: OMEPRAZOLE
  6. AMBIEN [Concomitant]
     Active Substance: ZOLPIDEM TARTRATE
  7. NOVOLOG [Concomitant]
     Active Substance: INSULIN ASPART
  8. OXYCODONE [Concomitant]
     Active Substance: OXYCODONE
  9. LACTULOSE. [Concomitant]
     Active Substance: LACTULOSE
  10. GABAPENTIN. [Concomitant]
     Active Substance: GABAPENTIN
  11. ACETIC ACID. [Concomitant]
     Active Substance: ACETIC ACID
  12. IRON [Concomitant]
     Active Substance: IRON
  13. MIRALAX [Concomitant]
     Active Substance: POLYETHYLENE GLYCOL 3350
  14. VELTASSA [Suspect]
     Active Substance: PATIROMER
     Indication: HYPERKALAEMIA
     Route: 048
     Dates: start: 20170623
  15. CLONIDINE. [Concomitant]
     Active Substance: CLONIDINE

REACTIONS (3)
  - Fluid overload [Unknown]
  - Dyspnoea [Unknown]
  - Blood potassium increased [Unknown]

NARRATIVE: CASE EVENT DATE: 20180511
